FAERS Safety Report 21566128 (Version 1)
Quarter: 2022Q4

REPORT INFORMATION
  Report Type: Spontaneous
  Country: CA (occurrence: CA)
  Receive Date: 20221108
  Receipt Date: 20221108
  Transmission Date: 20230112
  Serious: Yes (Hospitalization)
  Sender: FDA-Public Use
  Company Number: CA-MYLANLABS-2022M1122386

PATIENT
  Sex: Female
  Weight: 55.7 kg

DRUGS (1)
  1. LYRICA [Suspect]
     Active Substance: PREGABALIN
     Indication: Product used for unknown indication
     Dosage: UNK UNK, BID
     Route: 065

REACTIONS (7)
  - Hospitalisation [Unknown]
  - Haematological infection [Unknown]
  - Anxiety [Unknown]
  - Palpitations [Unknown]
  - Sneezing [Unknown]
  - Dizziness [Unknown]
  - White blood cell count decreased [Unknown]
